FAERS Safety Report 6518116-2 (Version None)
Quarter: 2009Q4

REPORT INFORMATION
  Report Type: 
  Country: None (occurrence: None)
  Receive Date: 20091223
  Receipt Date: 20091223
  Transmission Date: 20100525
  Serious: No
  Sender: FDA-Public Use
  Company Number: None

PATIENT
  Age: 53 Year
  Sex: Male
  Weight: 75.3 kg

DRUGS (1)
  1. IRON DEXTRAN [Suspect]
     Dosage: 25 MG ONCE IV
     Route: 042
     Dates: start: 20091120, end: 20091120

REACTIONS (5)
  - CHILLS [None]
  - DIZZINESS [None]
  - HYPOTENSION [None]
  - PALPITATIONS [None]
  - VISION BLURRED [None]
